FAERS Safety Report 26100589 (Version 1)
Quarter: 2025Q4

REPORT INFORMATION
  Report Type: Spontaneous
  Country: US (occurrence: US)
  Receive Date: 20251128
  Receipt Date: 20251128
  Transmission Date: 20260117
  Serious: No
  Sender: SANOFI AVENTIS
  Company Number: US-SA-2025SA355879

PATIENT
  Age: 42 Year
  Sex: Female

DRUGS (2)
  1. DUPIXENT [Suspect]
     Active Substance: DUPILUMAB
     Indication: Asthma
     Dosage: 300 MG, QOW
     Route: 058
     Dates: start: 202409
  2. MIRENA [Concomitant]
     Active Substance: LEVONORGESTREL
     Dosage: UNK
     Dates: start: 201909

REACTIONS (1)
  - Asthma [Not Recovered/Not Resolved]

NARRATIVE: CASE EVENT DATE: 20251001
